FAERS Safety Report 18194075 (Version 3)
Quarter: 2020Q4

REPORT INFORMATION
  Report Type: Spontaneous
  Country: US (occurrence: US)
  Receive Date: 20200825
  Receipt Date: 20201002
  Transmission Date: 20210113
  Serious: Yes (Other)
  Sender: FDA-Public Use
  Company Number: NVSC2020US232843

PATIENT
  Age: 70 Year
  Sex: Male
  Weight: 70.5 kg

DRUGS (1)
  1. KYMRIAH [Suspect]
     Active Substance: TISAGENLECLEUCEL
     Indication: PRODUCT USED FOR UNKNOWN INDICATION
     Dosage: 48 ML, ONCE/SINGLE
     Route: 042
     Dates: start: 20200728, end: 20200728

REACTIONS (8)
  - Serum ferritin increased [Recovered/Resolved]
  - Cytokine release syndrome [Recovered/Resolved]
  - Anaemia [Unknown]
  - Pyrexia [Recovered/Resolved]
  - Brain natriuretic peptide increased [Recovered/Resolved]
  - Troponin increased [Recovered/Resolved]
  - Sinus tachycardia [Recovered/Resolved]
  - Chills [Recovered/Resolved]

NARRATIVE: CASE EVENT DATE: 20200730
